FAERS Safety Report 20587507 (Version 13)
Quarter: 2022Q2

REPORT INFORMATION
  Report Type: Report from Study
  Country: US (occurrence: US)
  Receive Date: 20220314
  Receipt Date: 20220620
  Transmission Date: 20220721
  Serious: Yes (Hospitalization)
  Sender: FDA-Public Use
  Company Number: US-NOVARTISTESTPH-NVSC2022US058377

PATIENT
  Sex: Female
  Weight: 77.11 kg

DRUGS (8)
  1. TREPROSTINIL [Suspect]
     Active Substance: TREPROSTINIL
     Indication: Pulmonary arterial hypertension
     Dosage: 1.2 NANOGRAM PER KILOGRAM (1.2 NG/KG/MIN), CONT (CONCENTRATION: 2.5 MG/ML)
     Route: 058
     Dates: start: 20220309
  2. TREPROSTINIL [Suspect]
     Active Substance: TREPROSTINIL
     Dosage: 4.4 NANOGRAM PER KILOGRAM  (4.4 NG/KG/MIN), CONT (CONCENTRATION: 2.5 MG/ML)
     Route: 058
  3. TREPROSTINIL [Suspect]
     Active Substance: TREPROSTINIL
     Dosage: 8.8 NANOGRAM PER KILOGRAM (8.8 NG/KG/MIN),CONT (CONCENTRATION: 2.5 MG/ML)
     Route: 058
  4. TREPROSTINIL [Suspect]
     Active Substance: TREPROSTINIL
     Dosage: 15 NG/KG/MIN, CONT (CONCENTRATION: 1 MG/ML)
     Route: 042
  5. EPOPROSTENOL [Suspect]
     Active Substance: EPOPROSTENOL
     Indication: Product used for unknown indication
     Dosage: UNK
     Route: 065
  6. AMBRISENTAN [Concomitant]
     Active Substance: AMBRISENTAN
     Indication: Product used for unknown indication
     Dosage: UNK
     Route: 065
  7. SILDENAFIL CITRATE [Concomitant]
     Active Substance: SILDENAFIL CITRATE
     Indication: Product used for unknown indication
     Dosage: UNK
     Route: 065
  8. ELIQUIS [Concomitant]
     Active Substance: APIXABAN
     Indication: Product used for unknown indication
     Dosage: UNK
     Route: 065

REACTIONS (8)
  - Dyspnoea [Unknown]
  - Pulmonary hypertension [Unknown]
  - Cyanosis [Unknown]
  - Chills [Unknown]
  - Chest discomfort [Unknown]
  - Infusion site pain [Unknown]
  - Infusion site erythema [Unknown]
  - Therapy non-responder [Unknown]
